FAERS Safety Report 9571439 (Version 5)
Quarter: 2015Q4

REPORT INFORMATION
  Report Type: Report from Study
  Country: US (occurrence: US)
  Receive Date: 20131001
  Receipt Date: 20151016
  Transmission Date: 20160305
  Serious: Yes (Hospitalization, Other)
  Sender: FDA-Public Use
  Company Number: US-ABBVIE-13P-163-1142702-00

PATIENT
  Sex: Male

DRUGS (1)
  1. HUMIRA [Suspect]
     Active Substance: ADALIMUMAB
     Indication: MATERNAL EXPOSURE TIMING UNSPECIFIED
     Route: 064

REACTIONS (14)
  - Premature baby [Unknown]
  - Cerebral haemorrhage [Recovered/Resolved]
  - Eye operation [Recovered/Resolved]
  - Gastrooesophageal reflux disease [Not Recovered/Not Resolved]
  - Tooth injury [Not Recovered/Not Resolved]
  - Inguinal hernia [Recovered/Resolved]
  - Scrotal swelling [Unknown]
  - Weight gain poor [Recovered/Resolved]
  - Foetal exposure during pregnancy [Unknown]
  - Rhinovirus infection [Recovered/Resolved]
  - Hyperactive pharyngeal reflex [Not Recovered/Not Resolved]
  - Bronchopulmonary dysplasia [Recovering/Resolving]
  - Febrile convulsion [Recovered/Resolved]
  - Rhinovirus infection [Recovered/Resolved]

NARRATIVE: CASE EVENT DATE: 2013
